FAERS Safety Report 8678122 (Version 2)
Quarter: 2013Q3

REPORT INFORMATION
  Report Type: Report from Study
  Country: US (occurrence: US)
  Receive Date: 20120723
  Receipt Date: 20130809
  Transmission Date: 20140515
  Serious: Yes (Other)
  Sender: FDA-Public Use
  Company Number: US-ASTRAZENECA-2012SE47053

PATIENT
  Sex: Male

DRUGS (5)
  1. BICALUTAMIDE [Suspect]
     Indication: PROSTATE CANCER
     Route: 048
  2. GOSERELIN ACETATE [Suspect]
     Indication: PROSTATE CANCER
     Dosage: EVERY 12 WEEKS FOR 2 YEARS
  3. SUNITINIB [Interacting]
     Indication: PROSTATE CANCER
  4. SUNITINIB [Interacting]
     Indication: PROSTATE CANCER
  5. RADIOTHERAPY [Suspect]
     Indication: PROSTATE CANCER

REACTIONS (2)
  - Drug interaction [Recovered/Resolved]
  - Neutropenia [Unknown]
